FAERS Safety Report 25238382 (Version 1)
Quarter: 2025Q2

REPORT INFORMATION
  Report Type: Spontaneous
  Country: US (occurrence: US)
  Receive Date: 20250425
  Receipt Date: 20250425
  Transmission Date: 20250717
  Serious: Yes (Life-Threatening, Hospitalization)
  Sender: Unknown Manufacturer
  Company Number: US-MLMSERVICE-20250409-PI469857-00052-2

PATIENT
  Age: 5 Month
  Sex: Female

DRUGS (1)
  1. AMOXICILLIN [Suspect]
     Active Substance: AMOXICILLIN
     Indication: Otitis media

REACTIONS (2)
  - Ecthyma [Recovered/Resolved]
  - Pseudomonas infection [Recovered/Resolved]
